FAERS Safety Report 4456027-7 (Version None)
Quarter: 2004Q3

REPORT INFORMATION
  Report Type: 
  Country: None (occurrence: None)
  Receive Date: 20040920
  Receipt Date: 20040908
  Transmission Date: 20050211
  Serious: Yes (Hospitalization)
  Sender: FDA-Public Use
  Company Number: STA-AE-04-MTX-287

PATIENT
  Age: 67 Year
  Sex: Female

DRUGS (10)
  1. RHEUMATREX [Suspect]
     Indication: RHEUMATOID ARTHRITIS
     Dosage: 4 MG 1X PER 1 WK, ORAL
     Route: 048
     Dates: start: 20030501, end: 20040610
  2. CLINORIL [Concomitant]
  3. FOSAMAX [Concomitant]
  4. PREDNISOLONE [Concomitant]
  5. ONE-ALPHA (ALFACALCIDOL) [Concomitant]
  6. MYONAL (EPERISONE HYDROCHLORIDE) [Concomitant]
  7. GASTER (FAMOTIDINE) [Concomitant]
  8. EUGLUCAN (GLIBENCLAMIDE) [Concomitant]
  9. LEVOTHYROXINE SODIUM [Concomitant]
  10. LASIX [Concomitant]

REACTIONS (7)
  - DISSEMINATED INTRAVASCULAR COAGULATION [None]
  - DRUG INEFFECTIVE [None]
  - INTERSTITIAL LUNG DISEASE [None]
  - LIVER DISORDER [None]
  - MULTI-ORGAN FAILURE [None]
  - NASOPHARYNGITIS [None]
  - SYSTEMIC INFLAMMATORY RESPONSE SYNDROME [None]
